FAERS Safety Report 6216525-2 (Version None)
Quarter: 2009Q2

REPORT INFORMATION
  Report Type: 
  Country: None (occurrence: None)
  Receive Date: 20090603
  Receipt Date: 20090603
  Transmission Date: 20091009
  Serious: Yes (Hospitalization)
  Sender: FDA-Public Use
  Company Number: None

PATIENT
  Age: 18 Year
  Sex: Female
  Weight: 14 kg

DRUGS (6)
  1. HYOSCINE HBR HYT [Suspect]
     Indication: INCREASED BRONCHIAL SECRETION
     Dosage: 1/3 PATCH EVERY 3, TRANSDERMAL; 0.5 DF, QOD, TRANSDERMAL; 0.5 DF. Q72H, TRANSDERMAL
     Route: 062
     Dates: start: 20080501, end: 20080801
  2. HYOSCINE HBR HYT [Suspect]
     Indication: INCREASED BRONCHIAL SECRETION
     Dosage: 1/3 PATCH EVERY 3, TRANSDERMAL; 0.5 DF, QOD, TRANSDERMAL; 0.5 DF. Q72H, TRANSDERMAL
     Route: 062
     Dates: start: 20080801, end: 20081001
  3. HYOSCINE HBR HYT [Suspect]
     Indication: INCREASED BRONCHIAL SECRETION
     Dosage: 1/3 PATCH EVERY 3, TRANSDERMAL; 0.5 DF, QOD, TRANSDERMAL; 0.5 DF. Q72H, TRANSDERMAL
     Route: 062
     Dates: start: 20081009
  4. CLONAZEPAM [Concomitant]
  5. TEGRETOL [Concomitant]
  6. OMEPRAZOLE [Concomitant]

REACTIONS (9)
  - APPLICATION SITE ERYTHEMA [None]
  - APPLICATION SITE IRRITATION [None]
  - BLISTER [None]
  - GASTROSTOMY [None]
  - INFLAMMATION [None]
  - LUNG ABSCESS [None]
  - OESOPHAGOGASTRIC FUNDOPLASTY [None]
  - WOUND SECRETION [None]
  - WRONG TECHNIQUE IN DRUG USAGE PROCESS [None]
